FAERS Safety Report 19640099 (Version 1)
Quarter: 2021Q3

REPORT INFORMATION
  Report Type: Spontaneous
  Country: US (occurrence: US)
  Receive Date: 20210730
  Receipt Date: 20210730
  Transmission Date: 20211014
  Serious: No
  Sender: FDA-Public Use
  Company Number: US-PFIZER INC-2021823077

PATIENT
  Age: 58 Year
  Sex: Male

DRUGS (2)
  1. CELECOXIB. [Suspect]
     Active Substance: CELECOXIB
     Indication: BACK PAIN
  2. CELECOXIB. [Suspect]
     Active Substance: CELECOXIB
     Indication: NECK PAIN
     Dosage: UNK

REACTIONS (1)
  - Pain [Unknown]
